FAERS Safety Report 7529110 (Version 2)
Quarter: 2013Q3

REPORT INFORMATION
  Report Type: Report from Study
  Country: BR (occurrence: BR)
  Receive Date: 20100805
  Receipt Date: 20130813
  Transmission Date: 20140515
  Serious: Yes (Congenital Anomaly)
  Sender: FDA-Public Use
  Company Number: BR-B.I. PHARMACEUTICALS,INC./RIDGEFIELD-2010-BP-08496BP

PATIENT
  Age: 0 Day
  Sex: Female
  Weight: 2.8 kg

DRUGS (9)
  1. VIRAMUNE [Suspect]
     Indication: EXPOSURE DURING PREGNANCY
     Route: 064
     Dates: start: 20020918, end: 20021015
  2. VIRACEPT [Concomitant]
     Indication: EXPOSURE DURING PREGNANCY
     Route: 064
     Dates: start: 20021015
  3. VIDEX [Concomitant]
     Indication: EXPOSURE DURING PREGNANCY
     Route: 064
     Dates: start: 20020821, end: 20020918
  4. COMBIVIR [Concomitant]
     Indication: EXPOSURE DURING PREGNANCY
     Route: 064
     Dates: start: 20020918
  5. ASCORBIC ACID (VIT C) [Concomitant]
     Indication: EXPOSURE DURING PREGNANCY
     Route: 064
  6. BENZATHINE BENZYLPE [Concomitant]
     Indication: EXPOSURE DURING PREGNANCY
     Route: 064
  7. DEXCHLORPHENIRAMINE [Concomitant]
     Indication: EXPOSURE DURING PREGNANCY
     Route: 064
  8. IRON PREPARATIONS [Concomitant]
     Indication: EXPOSURE DURING PREGNANCY
     Route: 064
  9. NEBACETIN [Concomitant]
     Indication: EXPOSURE DURING PREGNANCY
     Route: 064

REACTIONS (2)
  - Patent ductus arteriosus [Unknown]
  - Umbilical hernia [Unknown]
